FAERS Safety Report 16590355 (Version 3)
Quarter: 2019Q3

REPORT INFORMATION
  Report Type: Report from Study
  Country: GB (occurrence: GB)
  Receive Date: 20190718
  Receipt Date: 20190819
  Transmission Date: 20191004
  Serious: Yes (Other)
  Sender: FDA-Public Use
  Company Number: PHHY2019GB164593

PATIENT
  Age: 18 Year
  Sex: Female
  Weight: 71 kg

DRUGS (3)
  1. VOTRIENT [Suspect]
     Active Substance: PAZOPANIB HYDROCHLORIDE
     Indication: DESMOPLASTIC SMALL ROUND CELL TUMOUR
     Dosage: 800 OT, QD
     Route: 048
     Dates: start: 20181203
  2. VOTRIENT [Suspect]
     Active Substance: PAZOPANIB HYDROCHLORIDE
     Dosage: UNK (DOSE REDUCED)
     Route: 048
  3. VOTRIENT [Suspect]
     Active Substance: PAZOPANIB HYDROCHLORIDE
     Dosage: 800 OT, QD (FULL DOSE)
     Route: 048

REACTIONS (3)
  - Cardiac dysfunction [Not Recovered/Not Resolved]
  - Chest pain [Unknown]
  - Hypertension [Recovering/Resolving]

NARRATIVE: CASE EVENT DATE: 20190322
